FAERS Safety Report 5716364-2 (Version None)
Quarter: 2008Q2

REPORT INFORMATION
  Report Type: 
  Country: None (occurrence: None)
  Receive Date: 20080422
  Receipt Date: 20080407
  Transmission Date: 20081010
  Serious: Yes (Other)
  Sender: FDA-Public Use
  Company Number: 2008S1005709

PATIENT
  Age: 56 Year
  Sex: Male

DRUGS (4)
  1. CITALOPRAM HYDROBROMIDE [Suspect]
     Indication: DEPRESSION
     Dosage: 10 MG ORAL
     Route: 048
     Dates: start: 20051205
  2. ATIVAN [Concomitant]
  3. NICORETTE [Concomitant]
  4. TYLENOL [Concomitant]

REACTIONS (8)
  - ABNORMAL BEHAVIOUR [None]
  - AGGRESSION [None]
  - AGITATION [None]
  - ALCOHOL INTERACTION [None]
  - CONFUSIONAL STATE [None]
  - DEREALISATION [None]
  - MEMORY IMPAIRMENT [None]
  - PANIC REACTION [None]
